FAERS Safety Report 24018845 (Version 2)
Quarter: 2024Q3

REPORT INFORMATION
  Report Type: Spontaneous
  Country: NZ (occurrence: NZ)
  Receive Date: 20240627
  Receipt Date: 20240722
  Transmission Date: 20241017
  Serious: Yes (Hospitalization)
  Sender: TASMAN PHARMA
  Company Number: NZ-TASMAN PHARMA, INC.-2024TSM00205

PATIENT
  Age: 45 Year
  Sex: Female

DRUGS (10)
  1. VERSACLOZ [Suspect]
     Active Substance: CLOZAPINE
     Dosage: 500 MG
     Dates: start: 20230818, end: 20230822
  2. VERSACLOZ [Suspect]
     Active Substance: CLOZAPINE
     Dosage: 500 MG
     Dates: start: 20231116, end: 20240108
  3. VERSACLOZ [Suspect]
     Active Substance: CLOZAPINE
     Dosage: 500 MG
     Dates: start: 20240207, end: 20240422
  4. VERSACLOZ [Suspect]
     Active Substance: CLOZAPINE
     Dosage: 650 MG
     Dates: start: 20240610
  5. CLOZAPINE [Suspect]
     Active Substance: CLOZAPINE
     Dosage: 500 MG
     Dates: start: 20230927, end: 20231025
  6. CLOZAPINE [Suspect]
     Active Substance: CLOZAPINE
     Dosage: 600 MG
     Dates: start: 20240521, end: 20240609
  7. CLOZAPINE [Suspect]
     Active Substance: CLOZAPINE
     Dosage: 500 MG
     Dates: start: 20230823, end: 20230926
  8. CLOZAPINE [Suspect]
     Active Substance: CLOZAPINE
     Dosage: 500 MG
     Dates: start: 20231026, end: 20231115
  9. CLOZAPINE [Suspect]
     Active Substance: CLOZAPINE
     Dosage: 500 MG
     Dates: start: 20240109, end: 20240206
  10. CLOZAPINE [Suspect]
     Active Substance: CLOZAPINE
     Dosage: 500 MG
     Dates: start: 20240423, end: 20240520

REACTIONS (4)
  - Neutrophil count increased [Recovered/Resolved]
  - White blood cell count increased [Recovered/Resolved]
  - Mental disorder [Unknown]
  - Treatment noncompliance [Unknown]

NARRATIVE: CASE EVENT DATE: 20240521
